FAERS Safety Report 6412716-6 (Version None)
Quarter: 2009Q4

REPORT INFORMATION
  Report Type: 
  Country: None (occurrence: None)
  Receive Date: 20091023
  Receipt Date: 20091021
  Transmission Date: 20100525
  Serious: Yes (Death, Hospitalization)
  Sender: FDA-Public Use
  Company Number: PHHO2009FR13019

PATIENT
  Sex: Female
  Weight: 69 kg

DRUGS (3)
  1. STI571/CGP57148B T35717+TAB [Suspect]
     Indication: ACUTE LYMPHOCYTIC LEUKAEMIA
     Dosage: UNK
     Dates: start: 20050728
  2. METHOTREXATE [Concomitant]
     Dosage: 1700 MG, QD
     Route: 042
     Dates: start: 20090831
  3. CYTARABINE [Concomitant]
     Dosage: 1100 MG, QD
     Route: 042
     Dates: start: 20090901, end: 20090902

REACTIONS (11)
  - ACUTE RESPIRATORY DISTRESS SYNDROME [None]
  - APLASIA [None]
  - BRADYCARDIA [None]
  - DEVICE RELATED INFECTION [None]
  - HYPOXIA [None]
  - LUNG DISORDER [None]
  - MULTI-ORGAN FAILURE [None]
  - PNEUMOCYSTIS JIROVECI PNEUMONIA [None]
  - PYREXIA [None]
  - SEPTIC SHOCK [None]
  - STREPTOCOCCAL INFECTION [None]
